FAERS Safety Report 25797440 (Version 2)
Quarter: 2025Q4

REPORT INFORMATION
  Report Type: Spontaneous
  Country: US (occurrence: US)
  Receive Date: 20250912
  Receipt Date: 20251106
  Transmission Date: 20260117
  Serious: Yes (Other)
  Sender: Thea Pharma
  Company Number: US-THEA-2025002211

PATIENT
  Age: 84 Year
  Sex: Female

DRUGS (2)
  1. IYUZEH [Suspect]
     Active Substance: LATANOPROST
     Indication: Product used for unknown indication
     Route: 047
     Dates: start: 20250106, end: 20250116
  2. IYUZEH [Suspect]
     Active Substance: LATANOPROST
     Indication: Product used for unknown indication
     Route: 047
     Dates: start: 20250827, end: 202509

REACTIONS (4)
  - Cardiac disorder [Unknown]
  - Syncope [Unknown]
  - Chest discomfort [Unknown]
  - Blindness [Unknown]

NARRATIVE: CASE EVENT DATE: 20250903
